FAERS Safety Report 17285690 (Version 2)
Quarter: 2025Q1

REPORT INFORMATION
  Report Type: Spontaneous
  Country: US (occurrence: US)
  Receive Date: 20200118
  Receipt Date: 20250128
  Transmission Date: 20250408
  Serious: Yes (Other)
  Sender: MERCK
  Company Number: US-009507513-2001USA005726

PATIENT
  Age: 80 Year

DRUGS (1)
  1. FOSAMAX [Suspect]
     Active Substance: ALENDRONATE SODIUM

REACTIONS (3)
  - Diabetes mellitus [Unknown]
  - Product packaging difficult to open [Unknown]
  - Product blister packaging issue [Unknown]
